FAERS Safety Report 21114658 (Version 1)
Quarter: 2022Q3

REPORT INFORMATION
  Report Type: Spontaneous
  Country: US (occurrence: US)
  Receive Date: 20220721
  Receipt Date: 20220721
  Transmission Date: 20221027
  Serious: No
  Sender: FDA-Public Use
  Company Number: US-MEDEXUS PHARMA, INC.-2022MED00217

PATIENT
  Age: 44 Year
  Sex: Female
  Weight: 76.19 kg

DRUGS (1)
  1. RASUVO [Suspect]
     Active Substance: METHOTREXATE SODIUM
     Indication: Psoriatic arthropathy
     Dosage: 20 MG, 1X/WEEK ON TUESDAYS TO HER BELLY
     Dates: start: 20220419

REACTIONS (4)
  - Injury associated with device [Recovered/Resolved]
  - Exposure via skin contact [Recovered/Resolved]
  - Product dose omission issue [Recovered/Resolved]
  - Off label use [Not Recovered/Not Resolved]

NARRATIVE: CASE EVENT DATE: 20220419
